FAERS Safety Report 10453256 (Version 5)
Quarter: 2015Q2

REPORT INFORMATION
  Report Type: Spontaneous
  Country: US (occurrence: US)
  Receive Date: 20140915
  Receipt Date: 20150508
  Transmission Date: 20150821
  Serious: Yes (Other)
  Sender: FDA-Public Use
  Company Number: US-PFIZER INC-2014250875

PATIENT
  Age: 56 Year
  Sex: Female
  Weight: 104 kg

DRUGS (1)
  1. INLYTA [Suspect]
     Active Substance: AXITINIB
     Indication: RENAL CANCER METASTATIC
     Dosage: 5 MG, 2X/DAY
     Route: 048
     Dates: start: 20140905

REACTIONS (7)
  - Headache [Unknown]
  - Fatigue [Unknown]
  - Disease progression [Unknown]
  - Back pain [Unknown]
  - Hypertension [Recovered/Resolved]
  - Blood calcium decreased [Unknown]
  - Renal cancer metastatic [Unknown]

NARRATIVE: CASE EVENT DATE: 2014
